FAERS Safety Report 10406939 (Version 3)
Quarter: 2014Q3

REPORT INFORMATION
  Report Type: Report from Study
  Country: AU (occurrence: AU)
  Receive Date: 20140825
  Receipt Date: 20140929
  Transmission Date: 20150326
  Serious: Yes (Hospitalization)
  Sender: FDA-Public Use
  Company Number: AU-BRISTOL-MYERS SQUIBB COMPANY-21327317

PATIENT
  Age: 53 Year
  Sex: Female

DRUGS (5)
  1. AVAPRO [Concomitant]
     Active Substance: IRBESARTAN
  2. METHOTREXATE [Concomitant]
     Active Substance: METHOTREXATE
  3. ORENCIA [Suspect]
     Active Substance: ABATACEPT
     Indication: RHEUMATOID ARTHRITIS
     Dates: start: 20140516
  4. VITAMIN B12 [Concomitant]
     Active Substance: CYANOCOBALAMIN
  5. NEXIUM [Concomitant]
     Active Substance: ESOMEPRAZOLE MAGNESIUM

REACTIONS (1)
  - Oesophagitis ulcerative [Recovered/Resolved]

NARRATIVE: CASE EVENT DATE: 20140813
